FAERS Safety Report 4709564-1 (Version None)
Quarter: 2005Q3

REPORT INFORMATION
  Report Type: 
  Country: None (occurrence: None)
  Receive Date: 20050706
  Receipt Date: 20050627
  Transmission Date: 20060218
  Serious: Yes (Other)
  Sender: FDA-Public Use
  Company Number: 2005082422

PATIENT
  Age: 87 Year
  Sex: Female

DRUGS (5)
  1. ZITHROMAX [Suspect]
     Indication: BRONCHITIS
     Dosage: 500 MG, ORAL
     Route: 048
     Dates: start: 20050430, end: 20050502
  2. LOXONIN (LOXOPROFEN SODIUM) [Concomitant]
  3. DASEN (SERRAPEPTASE) [Concomitant]
  4. MUCOSOLVAN (AMBROXOL HYDROCHLORIDE) [Concomitant]
  5. NORVASC [Concomitant]

REACTIONS (8)
  - ANORECTAL DISORDER [None]
  - BLISTER [None]
  - EXCORIATION [None]
  - GENITAL EROSION [None]
  - INFECTION [None]
  - LIP EROSION [None]
  - ORAL INTAKE REDUCED [None]
  - PYREXIA [None]
